FAERS Safety Report 21600897 (Version 1)
Quarter: 2022Q4

REPORT INFORMATION
  Report Type: Other
  Country: None (occurrence: US)
  Receive Date: 20221116
  Receipt Date: 20221116
  Transmission Date: 20230113
  Serious: No
  Sender: FDA-Public Use
  Company Number: US-Ascent Pharmaceuticals, Inc.-2134920

PATIENT

DRUGS (1)
  1. DEXTROAMPHET SACCHARAT, AMPHET ASPARTATE, DEXTROAMPHET SULFATE AND AMP [Suspect]
     Active Substance: AMPHETAMINE ASPARTATE\AMPHETAMINE SULFATE\DEXTROAMPHETAMINE SACCHARATE\DEXTROAMPHETAMINE SULFATE
     Indication: Product used for unknown indication
     Route: 065

REACTIONS (15)
  - Disturbance in attention [Unknown]
  - Memory impairment [Unknown]
  - Somnolence [Unknown]
  - Headache [Unknown]
  - Depression [Unknown]
  - Hangover [Unknown]
  - Flatulence [Unknown]
  - Abdominal distension [Unknown]
  - Insomnia [Unknown]
  - Abdominal discomfort [Unknown]
  - Dizziness [Unknown]
  - Thinking abnormal [Unknown]
  - Impaired work ability [Unknown]
  - Product quality issue [Unknown]
  - Product substitution issue [Unknown]
